FAERS Safety Report 9616014 (Version 2)
Quarter: 2013Q4

REPORT INFORMATION
  Report Type: Spontaneous
  Country: US (occurrence: US)
  Receive Date: 20131011
  Receipt Date: 20131011
  Transmission Date: 20140711
  Serious: No
  Sender: FDA-Public Use
  Company Number: US-PURDUE-USA-2013-0099380

PATIENT
  Age: 58 Year
  Sex: Male
  Weight: 99.32 kg

DRUGS (11)
  1. BUTRANS [Suspect]
     Indication: BACK PAIN
     Dosage: UNK
     Route: 062
     Dates: start: 201112
  2. BUTRANS [Suspect]
     Dosage: 20 MCG/HR, 1/WEEK
     Route: 062
     Dates: start: 20120620, end: 20130219
  3. HYDROCODONE                        /00060002/ [Concomitant]
     Indication: PAIN
     Dosage: 1 TABLET (7.5/325MG), TID
     Route: 048
  4. LIPITOR [Concomitant]
     Indication: BLOOD PRESSURE
     Dosage: 10 MG, DAILY
     Route: 048
  5. FOSINOPRIL                         /00915302/ [Concomitant]
     Indication: BLOOD PRESSURE
     Dosage: 40 MG, QD PRN
     Route: 048
  6. DILTIAZEM                          /00489702/ [Concomitant]
     Indication: ATRIAL FIBRILLATION
     Dosage: 180 MG, QD PRN
     Route: 048
  7. BABY ASPIRIN [Concomitant]
     Indication: PRODUCT USED FOR UNKNOWN INDICATION
     Dosage: 80 MG, QD PRN
     Route: 048
  8. VITAMIN D3 [Concomitant]
     Indication: PRODUCT USED FOR UNKNOWN INDICATION
     Dosage: 2000 IU, QD PRN
     Route: 048
  9. SINGULAIR [Concomitant]
     Indication: HYPERSENSITIVITY
     Dosage: 10 MG, QD PRN
     Route: 048
     Dates: start: 2009
  10. SINGULAIR [Concomitant]
     Indication: CHRONIC SINUSITIS
  11. OMEGA 3 FISH OIL [Concomitant]
     Indication: PRODUCT USED FOR UNKNOWN INDICATION
     Dosage: 300 MG, QD PRN
     Route: 048

REACTIONS (4)
  - Sinusitis [Not Recovered/Not Resolved]
  - Product colour issue [Unknown]
  - Product contamination [Unknown]
  - Rash [Recovered/Resolved]
